FAERS Safety Report 6712051-2 (Version None)
Quarter: 2010Q2

REPORT INFORMATION
  Report Type: 
  Country: None (occurrence: None)
  Receive Date: 20100505
  Receipt Date: 20100427
  Transmission Date: 20101027
  Serious: Yes (Other)
  Sender: FDA-Public Use
  Company Number: PHHO2010NZ06456

PATIENT

DRUGS (2)
  1. STI571/CGP57148B T35717+TAB [Suspect]
     Indication: CHRONIC MYELOID LEUKAEMIA
     Dosage: 600MG DAILY
     Route: 048
  2. STI571/CGP57148B T35717+TAB [Suspect]
     Dosage: 400MG DAILY
     Route: 048

REACTIONS (1)
  - DRUG INTOLERANCE [None]
